FAERS Safety Report 5719846-2 (Version None)
Quarter: 2008Q2

REPORT INFORMATION
  Report Type: 
  Country: None (occurrence: None)
  Receive Date: 20080428
  Receipt Date: 20080414
  Transmission Date: 20081010
  Serious: Yes (Hospitalization)
  Sender: FDA-Public Use
  Company Number: GB-AMGEN-UK254933

PATIENT
  Sex: Male

DRUGS (28)
  1. PANITUMUMAB [Suspect]
     Indication: COLORECTAL CANCER
     Route: 042
     Dates: start: 20070514
  2. ATORVASTATIN CALCIUM [Concomitant]
     Route: 048
     Dates: start: 20020101, end: 20071123
  3. ISOSORBIDE MONONITRATE [Concomitant]
     Route: 048
     Dates: start: 20070501, end: 20071123
  4. GLIPIZIDE [Concomitant]
     Route: 047
     Dates: start: 20030101, end: 20071123
  5. ATENOLOL [Concomitant]
     Route: 048
     Dates: start: 20020101, end: 20071123
  6. ASPIRIN [Concomitant]
     Route: 048
     Dates: start: 20020101, end: 20071123
  7. DEXAMETHASONE [Concomitant]
     Route: 048
     Dates: start: 20070515, end: 20071123
  8. DOMPERIDONE [Concomitant]
     Route: 047
     Dates: start: 20070515, end: 20071123
  9. CIPROFLOXACIN HCL [Concomitant]
     Route: 047
     Dates: start: 20070712, end: 20070719
  10. FLUCONAZOLE [Concomitant]
     Route: 048
     Dates: start: 20070712, end: 20070712
  11. ACYCLOVIR [Concomitant]
     Dates: start: 20070712, end: 20070801
  12. CODEINE SUL TAB [Concomitant]
     Route: 048
     Dates: start: 20070712, end: 20070719
  13. GRANISETRON HCL [Concomitant]
     Route: 048
     Dates: start: 20070515, end: 20070723
  14. AQUEOUS CREAM [Concomitant]
     Dates: start: 20070530, end: 20071123
  15. CHLORHEXIDINE GLUCONATE [Concomitant]
     Route: 048
     Dates: start: 20070703, end: 20071123
  16. GELCLAIR [Concomitant]
     Route: 048
     Dates: start: 20070726, end: 20071123
  17. CYCLIZINE [Concomitant]
     Route: 048
     Dates: start: 20070919, end: 20071123
  18. CEPHALEXIN [Concomitant]
     Route: 047
     Dates: start: 20071106, end: 20071111
  19. CIPROFLOXACIN [Concomitant]
     Route: 048
     Dates: start: 20071101, end: 20071119
  20. NUTRITIONAL AGENTS AND VITAMINS [Concomitant]
     Dates: start: 20071108, end: 20071123
  21. GELOFUSINE [Concomitant]
     Dates: start: 20071109, end: 20071109
  22. UNSPECIFIED INTRAVENOUS FLUIDS [Concomitant]
     Dates: start: 20071109, end: 20071111
  23. RED BLOOD CELLS [Concomitant]
     Dates: start: 20071110, end: 20071111
  24. GENTAMICIN [Concomitant]
     Route: 042
     Dates: start: 20071109, end: 20071110
  25. PIPERACILLIN [Concomitant]
     Route: 042
     Dates: start: 20071109, end: 20071111
  26. LOPERAMIDE HCL [Concomitant]
     Route: 048
     Dates: start: 20070511, end: 20071123
  27. PARACETAMOL [Concomitant]
     Route: 042
     Dates: start: 20070912, end: 20070917
  28. ADALAT [Concomitant]
     Route: 048
     Dates: start: 20070501, end: 20071123

REACTIONS (1)
  - FEBRILE NEUTROPENIA [None]
